FAERS Safety Report 9441736 (Version 3)
Quarter: 2014Q4

REPORT INFORMATION
  Report Type: Spontaneous
  Country: JP (occurrence: JP)
  Receive Date: 20130806
  Receipt Date: 20141104
  Transmission Date: 20150529
  Serious: Yes (Hospitalization)
  Sender: FDA-Public Use
  Company Number: JP-AMGEN-JPNSP2013054726

PATIENT
  Age: 58 Year
  Sex: Female
  Weight: 62.5 kg

DRUGS (10)
  1. RANMARK [Suspect]
     Active Substance: DENOSUMAB
     Indication: METASTASES TO BONE
     Dosage: 120 MG, Q4WK
     Route: 058
     Dates: start: 20120522
  2. OXYCONTIN [Concomitant]
     Active Substance: OXYCODONE HYDROCHLORIDE
     Indication: CANCER PAIN
     Dosage: UNKNOWN EVERY
     Route: 065
  3. METHYCOBAL [Concomitant]
     Active Substance: METHYLCOBALAMIN
     Indication: NEUROPATHY PERIPHERAL
     Dosage: UNKNOWN EVERY
     Route: 065
  4. ZOMETA [Suspect]
     Active Substance: ZOLEDRONIC ACID
     Indication: METASTASES TO BONE
     Dosage: QMO
     Route: 041
     Dates: start: 201001, end: 20120424
  5. MAGMITT [Concomitant]
     Active Substance: MAGNESIUM OXIDE
     Indication: CONSTIPATION
     Dosage: UNKNOWN EVERY
     Route: 065
  6. CELECOX [Concomitant]
     Active Substance: CELECOXIB
     Indication: BACK PAIN
     Dosage: UNKNOWN EVERY
     Route: 065
  7. ZOLPIDEM TARTRATE. [Concomitant]
     Active Substance: ZOLPIDEM TARTRATE
     Indication: INSOMNIA
     Dosage: UNKNOWN EVERY
     Route: 065
  8. TAKEPRON [Concomitant]
     Active Substance: LANSOPRAZOLE
     Indication: GASTROOESOPHAGEAL REFLUX DISEASE
     Dosage: UNKNOWN EVERY
     Route: 065
  9. CALCIUM LACTATE [Concomitant]
     Active Substance: CALCIUM LACTATE
     Indication: OSTEOPOROSIS
     Dosage: UNKNOWN EVERY
     Route: 065
  10. ONEALFA [Concomitant]
     Active Substance: ALFACALCIDOL
     Indication: OSTEOPOROSIS
     Dosage: UNKNOWN EVERY
     Route: 065

REACTIONS (1)
  - Atypical fracture [Recovering/Resolving]

NARRATIVE: CASE EVENT DATE: 20130623
